FAERS Safety Report 10974551 (Version 1)
Quarter: 2015Q2

REPORT INFORMATION
  Report Type: Report from Study
  Country: CA (occurrence: CA)
  Receive Date: 20150401
  Receipt Date: 20150401
  Transmission Date: 20150821
  Serious: Yes (Other)
  Sender: FDA-Public Use
  Company Number: CA-ABBVIE-15K-028-1365350-00

PATIENT
  Age: 19 Year
  Sex: Male

DRUGS (1)
  1. HUMIRA [Suspect]
     Active Substance: ADALIMUMAB
     Indication: CROHN^S DISEASE
     Dosage: LOADING DOSE
     Route: 058
     Dates: start: 20150317, end: 20150317

REACTIONS (7)
  - Respiratory tract oedema [Not Recovered/Not Resolved]
  - Hypoaesthesia [Unknown]
  - Throat tightness [Not Recovered/Not Resolved]
  - Dyspnoea [Not Recovered/Not Resolved]
  - Swelling face [Unknown]
  - Dyspnoea [Unknown]
  - Tremor [Unknown]

NARRATIVE: CASE EVENT DATE: 20150317
